FAERS Safety Report 9492156 (Version 1)
Quarter: 2013Q3

REPORT INFORMATION
  Report Type: Spontaneous
  Country: US (occurrence: US)
  Receive Date: 20130830
  Receipt Date: 20130830
  Transmission Date: 20140515
  Serious: Yes (Other)
  Sender: FDA-Public Use
  Company Number: US-JNJFOC-20130812932

PATIENT
  Age: 75 Year
  Sex: Male

DRUGS (1)
  1. NICORETTE MINT [Suspect]
     Indication: EX-TOBACCO USER
     Route: 065

REACTIONS (2)
  - Drug administration error [Unknown]
  - Nicotine dependence [Not Recovered/Not Resolved]
